FAERS Safety Report 4752222-8 (Version None)
Quarter: 2005Q3

REPORT INFORMATION
  Report Type: 
  Country: None (occurrence: None)
  Receive Date: 20050824
  Receipt Date: 20050824
  Transmission Date: 20060218
  Serious: Yes (Other)
  Sender: FDA-Public Use
  Company Number: None

PATIENT
  Sex: Female
  Weight: 53.6 kg

DRUGS (3)
  1. MITOMYCIN [Suspect]
     Indication: ANAL CANCER
     Dosage: SEE IMAGE
     Route: 040
     Dates: start: 20050725, end: 20050725
  2. 5-FU [Suspect]
     Dosage: SEE IMAGE
     Dates: start: 20050725, end: 20050729
  3. RADIATION [Suspect]
     Dosage: SEE IMAGE
     Dates: start: 20050725

REACTIONS (16)
  - ABDOMINAL PAIN [None]
  - CULTURE URINE POSITIVE [None]
  - DYSURIA [None]
  - ENTERITIS [None]
  - GASTROINTESTINAL DISORDER [None]
  - GASTROINTESTINAL OEDEMA [None]
  - INFECTION [None]
  - NEUTROPENIA [None]
  - OEDEMA MUCOSAL [None]
  - PROCTITIS [None]
  - RADIATION ASSOCIATED PAIN [None]
  - RADIATION SKIN INJURY [None]
  - RECTAL HAEMORRHAGE [None]
  - STAPHYLOCOCCAL INFECTION [None]
  - TENDERNESS [None]
  - WHITE BLOOD CELL COUNT ABNORMAL [None]
